FAERS Safety Report 9867842 (Version 1)
Quarter: 2014Q1

REPORT INFORMATION
  Report Type: Report from Study
  Country: SK (occurrence: SK)
  Receive Date: 20140204
  Receipt Date: 20140204
  Transmission Date: 20141002
  Serious: Yes (Hospitalization)
  Sender: FDA-Public Use
  Company Number: SK-SANOFI-AVENTIS-2012SA068049

PATIENT
  Age: 27 Year
  Sex: Female
  Weight: 64 kg

DRUGS (5)
  1. TERIFLUNOMIDE [Suspect]
     Indication: MULTIPLE SCLEROSIS RELAPSE
     Route: 048
     Dates: start: 20111020
  2. AVONEX [Suspect]
     Indication: MULTIPLE SCLEROSIS RELAPSE
     Route: 065
     Dates: start: 20110315
  3. JEANINE [Concomitant]
     Dosage: DOSE:1 UNIT(S)
     Route: 065
  4. COAXIL [Concomitant]
     Route: 065
     Dates: start: 20111013
  5. TROSPIUM CHLORIDE [Concomitant]
     Route: 048
     Dates: start: 20120821

REACTIONS (1)
  - Major depression [Recovered/Resolved]
